FAERS Safety Report 7253977-3 (Version None)
Quarter: 2011Q1

REPORT INFORMATION
  Report Type: 
  Country: None (occurrence: None)
  Receive Date: 20110129
  Receipt Date: 20100326
  Transmission Date: 20110831
  Serious: Yes (Other)
  Sender: FDA-Public Use
  Company Number: US-ABBOTT-10P-163-0635014-00

PATIENT
  Sex: Female
  Weight: 68.1 kg

DRUGS (3)
  1. HUMIRA [Suspect]
     Route: 058
     Dates: start: 20080101, end: 20081001
  2. HUMIRA [Suspect]
     Indication: RHEUMATOID ARTHRITIS
     Route: 058
     Dates: start: 20080101
  3. HUMIRA [Suspect]
     Route: 058
     Dates: start: 20090601

REACTIONS (4)
  - LOCALISED INFECTION [None]
  - CYST [None]
  - HEPATIC ENZYME INCREASED [None]
  - INJECTION SITE PAIN [None]
